FAERS Safety Report 7037916-6 (Version None)
Quarter: 2010Q4

REPORT INFORMATION
  Report Type: 
  Country: None (occurrence: None)
  Receive Date: 20101011
  Receipt Date: 20101001
  Transmission Date: 20110411
  Serious: Yes (Other)
  Sender: FDA-Public Use
  Company Number: ZA-BAXTER-2010BH024887

PATIENT
  Age: 60 Year
  Sex: Male
  Weight: 142 kg

DRUGS (2)
  1. KETOROLAC TROMETHAMINE [Suspect]
     Indication: MUSCLE SPASMS
     Route: 065
     Dates: start: 20100915, end: 20100915
  2. VICODIN [Concomitant]
     Indication: PAIN
     Route: 048

REACTIONS (6)
  - DYSPNOEA [None]
  - MUSCULOSKELETAL DISCOMFORT [None]
  - OEDEMA PERIPHERAL [None]
  - PAIN IN EXTREMITY [None]
  - RASH MACULAR [None]
  - SKIN WARM [None]
